FAERS Safety Report 7259367-1 (Version None)
Quarter: 2011Q1

REPORT INFORMATION
  Report Type: 
  Country: None (occurrence: None)
  Receive Date: 20110129
  Receipt Date: 20100825
  Transmission Date: 20110831
  Serious: No
  Sender: FDA-Public Use
  Company Number: US-ABBOTT-10P-163-0666020-00

PATIENT
  Age: 48 Year
  Sex: Female

DRUGS (8)
  1. HUMIRA [Suspect]
     Indication: RHEUMATOID ARTHRITIS
     Dates: start: 20100701
  2. PLAQUENIL [Concomitant]
     Indication: RHEUMATOID ARTHRITIS
     Dosage: DAILY DOSE: 200MG
  3. PREDNISONE [Concomitant]
     Indication: RHEUMATOID ARTHRITIS
     Dosage: DAILY DOSE: 5MG
  4. METHOTREXATE [Concomitant]
     Indication: RHEUMATOID ARTHRITIS
     Dosage: 6-2.5 TABLETS WEELY
  5. BENADRYL [Concomitant]
     Dosage: WHEN TAKES HUMIRA INJECTION
  6. ACTONEL [Concomitant]
     Indication: RHEUMATOID ARTHRITIS
  7. TRAMADOL HCL [Concomitant]
     Indication: PAIN
  8. LEUCOVORIN [Concomitant]
     Indication: RHEUMATOID ARTHRITIS
     Dosage: WEEKLY DOSE: 5MG

REACTIONS (1)
  - FATIGUE [None]
